FAERS Safety Report 7418357-6 (Version None)
Quarter: 2011Q2

REPORT INFORMATION
  Report Type: 
  Country: None (occurrence: None)
  Receive Date: 20110415
  Receipt Date: 20100419
  Transmission Date: 20111010
  Serious: Yes (Other)
  Sender: FDA-Public Use
  Company Number: B0648814A

PATIENT
  Sex: Female
  Weight: 77 kg

DRUGS (2)
  1. LAMICTAL [Suspect]
     Indication: EPILEPSY
     Dosage: 50MG PER DAY
     Route: 048
     Dates: start: 20091124
  2. TEGRETOL [Concomitant]
     Indication: EPILEPSY
     Route: 048
     Dates: start: 20091101

REACTIONS (3)
  - RASH [None]
  - ABORTION SPONTANEOUS [None]
  - DRUG EXPOSURE DURING PREGNANCY [None]
